FAERS Safety Report 21299235 (Version 4)
Quarter: 2023Q1

REPORT INFORMATION
  Report Type: Other
  Country: US (occurrence: None)
  Receive Date: 20220906
  Receipt Date: 20230120
  Transmission Date: 20230417
  Serious: Yes (Hospitalization)
  Sender: FDA-Public Use
  Company Number: US-ROCHE-3152486

PATIENT
  Age: 64 Year
  Sex: Female

DRUGS (1)
  1. VALCYTE [Suspect]
     Active Substance: VALGANCICLOVIR HYDROCHLORIDE
     Indication: Lung transplant
     Dosage: 18ML QD?900MG BID
     Route: 065

REACTIONS (4)
  - Off label use [Unknown]
  - Disease progression [Unknown]
  - Infection [Unknown]
  - Cytomegalovirus infection reactivation [Unknown]
